FAERS Safety Report 9554207 (Version 1)
Quarter: 2013Q3

REPORT INFORMATION
  Report Type: Spontaneous
  Country: US (occurrence: None)
  Receive Date: 20130815
  Receipt Date: 20130815
  Transmission Date: 20140515
  Serious: Yes (Death)
  Sender: FDA-Public Use
  Company Number: 1559400

PATIENT
  Age: 72 Year
  Sex: Male
  Weight: 83.18 kg

DRUGS (34)
  1. LEUCOVORIN CALCIUM [Suspect]
     Indication: METASTATIC CARCINOID TUMOUR
     Dates: start: 20101201, end: 20110518
  2. SANDOSTATIN [Suspect]
     Indication: PRODUCT USED FOR UNKNOWN INDICATION
     Dates: start: 20101202, end: 20110127
  3. FLUOROURACIL [Suspect]
     Indication: METASTATIC CARCINOID TUMOUR
  4. AFINITOR [Suspect]
     Indication: METASTATIC CARCINOID TUMOUR
     Dates: start: 20110403
  5. ASPIRIN [Concomitant]
  6. DEXAMETHASONE [Concomitant]
  7. DULCOLAX [Concomitant]
  8. EVEROLIMUS [Concomitant]
  9. FISH OIL [Concomitant]
  10. FLAGYL [Concomitant]
  11. FOLIC ACID [Concomitant]
  12. IRON [Concomitant]
  13. LOMOTIL [Concomitant]
  14. LOSARTAN [Concomitant]
  15. LOSARTANYHYDROCHLORTHIAZIDE [Concomitant]
  16. MAGNESIUM OXIDE [Concomitant]
  17. MEGESTROL [Concomitant]
  18. MIRALAX [Concomitant]
  19. MULTIPLE VITAMINS [Concomitant]
  20. NEXIUM [Concomitant]
  21. PERCOCET [Concomitant]
  22. POTASSIUM CHLORIDE [Concomitant]
  23. PROMETHAZINE [Concomitant]
  24. REGLAN [Concomitant]
  25. SUNITINIB [Concomitant]
  26. SYNTHROID [Concomitant]
  27. TOPROL [Concomitant]
  28. VYTORIN [Concomitant]
  29. ZITHROMAX [Concomitant]
  30. ZOFRAN [Concomitant]
  31. NORMAL SALINE [Concomitant]
  32. INFLUENZA VACCINE [Concomitant]
  33. VACCINES [Concomitant]
  34. VITAMIN B12 [Concomitant]

REACTIONS (1)
  - Disease progression [None]
